FAERS Safety Report 8925437 (Version 1)
Quarter: 2012Q4

REPORT INFORMATION
  Report Type: Spontaneous
  Country: US (occurrence: None)
  Receive Date: 20121126
  Receipt Date: 20121126
  Transmission Date: 20130627
  Serious: Yes (Other)
  Sender: FDA-Public Use
  Company Number: None

PATIENT
  Age: 55 Year
  Sex: Female
  Weight: 81.65 kg

DRUGS (1)
  1. LYSINE [Suspect]
     Dosage: 1 tablet daily po
     Route: 048
     Dates: start: 20120901, end: 20121119

REACTIONS (8)
  - Malaise [None]
  - Abdominal pain upper [None]
  - Dyspepsia [None]
  - Gastric pH decreased [None]
  - Asthenia [None]
  - Vomiting [None]
  - Dizziness [None]
  - Throat irritation [None]
